FAERS Safety Report 8157830-2 (Version None)
Quarter: 2012Q1

REPORT INFORMATION
  Report Type: 
  Country: None (occurrence: None)
  Receive Date: 20120222
  Receipt Date: 20120216
  Transmission Date: 20120608
  Serious: Yes (Other)
  Sender: FDA-Public Use
  Company Number: US-PFIZER INC-2011273091

PATIENT
  Sex: Male

DRUGS (2)
  1. XALKORI [Suspect]
     Indication: LUNG NEOPLASM MALIGNANT
     Dosage: 250 MG, 2X/DAY
     Dates: start: 20111003
  2. XALKORI [Suspect]
     Dosage: 250 MG, UNK
     Dates: start: 20111207

REACTIONS (11)
  - PNEUMONITIS [None]
  - OXYGEN SATURATION ABNORMAL [None]
  - LUNG NEOPLASM MALIGNANT [None]
  - DISEASE PROGRESSION [None]
  - FLUID RETENTION [None]
  - BREATH SOUNDS ABNORMAL [None]
  - INFLUENZA LIKE ILLNESS [None]
  - COUGH [None]
  - WEIGHT INCREASED [None]
  - DYSPNOEA [None]
  - CONSTIPATION [None]
